FAERS Safety Report 17637651 (Version 1)
Quarter: 2020Q2

REPORT INFORMATION
  Report Type: Spontaneous
  Country: US (occurrence: US)
  Receive Date: 20200407
  Receipt Date: 20200407
  Transmission Date: 20200713
  Serious: No
  Sender: FDA-Public Use
  Company Number: US-GALDERMA-US2020002478

PATIENT
  Age: 11 Year
  Sex: Female

DRUGS (2)
  1. DIFFERIN GEL [Suspect]
     Active Substance: ADAPALENE
     Indication: ACNE
     Dosage: 0.1%
     Route: 061
  2. CETAPHIL DAILY FACIAL CLEANSER [Suspect]
     Active Substance: COSMETICS
     Indication: ACNE
     Route: 061

REACTIONS (5)
  - Drug ineffective [Unknown]
  - Off label use [Recovered/Resolved]
  - Dry skin [Recovered/Resolved]
  - Skin irritation [Unknown]
  - Product administered to patient of inappropriate age [Recovered/Resolved]
